FAERS Safety Report 7610551-4 (Version None)
Quarter: 2011Q3

REPORT INFORMATION
  Report Type: 
  Country: None (occurrence: None)
  Receive Date: 20110715
  Receipt Date: 20110704
  Transmission Date: 20111222
  Serious: Yes (Hospitalization)
  Sender: FDA-Public Use
  Company Number: JP-ELI_LILLY_AND_COMPANY-JP201106004422

PATIENT
  Age: 60 Year
  Sex: Male

DRUGS (6)
  1. ALIMTA [Suspect]
     Indication: LUNG ADENOCARCINOMA
     Dosage: 800 MG, OTHER
     Route: 042
     Dates: start: 20110610, end: 20110610
  2. METHYCOOL [Concomitant]
     Dosage: 1500 UG, UNK
     Route: 048
  3. PARAPLATIN [Concomitant]
     Indication: LUNG ADENOCARCINOMA
     Dosage: 450 MG, OTHER
     Route: 042
     Dates: start: 20110610, end: 20110610
  4. ALIMTA [Suspect]
     Dosage: UNK
     Route: 042
  5. PARAPLATIN [Concomitant]
     Dosage: UNK
     Route: 042
  6. PANVITAN [Concomitant]
     Dosage: 1 G, UNK
     Route: 048

REACTIONS (2)
  - DELIRIUM [None]
  - BLOOD IRON INCREASED [None]
